FAERS Safety Report 15587969 (Version 9)
Quarter: 2019Q4

REPORT INFORMATION
  Report Type: Report from Study
  Country: US (occurrence: US)
  Receive Date: 20181105
  Receipt Date: 20191114
  Transmission Date: 20200122
  Serious: Yes (Hospitalization)
  Sender: FDA-Public Use
  Company Number: US-ACTELION-A-NJ2018-181134

PATIENT
  Age: 1 Year
  Sex: Female
  Weight: 8.62 kg

DRUGS (5)
  1. BOSENTAN TABLET 32 MG PED US [Suspect]
     Active Substance: BOSENTAN
     Dosage: 16 MG, BID
     Route: 048
  2. REVATIO [Concomitant]
     Active Substance: SILDENAFIL CITRATE
     Dosage: 11 MG, TID
  3. ENALAPRIL [Concomitant]
     Active Substance: ENALAPRIL
  4. BOSENTAN TABLET 32 MG PED US [Suspect]
     Active Substance: BOSENTAN
     Indication: PULMONARY ARTERIAL HYPERTENSION
     Dosage: 16 MG, QD
     Route: 048
  5. BOSENTAN TABLET 32 MG PED US [Suspect]
     Active Substance: BOSENTAN
     Dosage: 32 MG, BID
     Route: 048

REACTIONS (7)
  - Oxygen saturation decreased [Unknown]
  - Teething [Unknown]
  - Post procedural complication [Unknown]
  - Hospitalisation [Unknown]
  - Cardiac operation [Unknown]
  - Fluid overload [Unknown]
  - Heart rate increased [Unknown]

NARRATIVE: CASE EVENT DATE: 20181003
